FAERS Safety Report 9727647 (Version 1)
Quarter: 2013Q4

REPORT INFORMATION
  Report Type: Spontaneous
  Country: ID (occurrence: ID)
  Receive Date: 20131203
  Receipt Date: 20131203
  Transmission Date: 20140711
  Serious: Yes (Hospitalization)
  Sender: FDA-Public Use
  Company Number: PHHY2013ID138822

PATIENT
  Age: 30 Year
  Sex: Male

DRUGS (1)
  1. SEBIVO [Suspect]
     Dosage: 600 MG, ONCE DAILY
     Route: 048

REACTIONS (1)
  - Platelet count decreased [Not Recovered/Not Resolved]
